FAERS Safety Report 11744473 (Version 1)
Quarter: 2015Q4

REPORT INFORMATION
  Report Type: Spontaneous
  Country: US (occurrence: US)
  Receive Date: 20151116
  Receipt Date: 20151116
  Transmission Date: 20160304
  Serious: No
  Sender: FDA-Public Use
  Company Number: US-WATSON-2014-28696

PATIENT
  Sex: Female
  Weight: 56.69 kg

DRUGS (2)
  1. PYLERA [Suspect]
     Active Substance: BISMUTH SUBCITRATE POTASSIUM\METRONIDAZOLE\TETRACYCLINE HYDROCHLORIDE
     Indication: HELICOBACTER INFECTION
     Dosage: UNK
     Route: 065
     Dates: start: 201401, end: 201401
  2. OMEPRAZOLE. [Concomitant]
     Active Substance: OMEPRAZOLE
     Indication: HELICOBACTER INFECTION
     Dosage: UNK
     Route: 065

REACTIONS (2)
  - Tooth discolouration [Not Recovered/Not Resolved]
  - Therapeutic response delayed [Recovered/Resolved]

NARRATIVE: CASE EVENT DATE: 2014
